FAERS Safety Report 13587423 (Version 8)
Quarter: 2019Q3

REPORT INFORMATION
  Report Type: Report from Study
  Country: US (occurrence: US)
  Receive Date: 20170526
  Receipt Date: 20190718
  Transmission Date: 20191004
  Serious: Yes (Hospitalization)
  Sender: FDA-Public Use
  Company Number: US-ACTELION-A-US2017-149713

PATIENT
  Age: 31 Year
  Sex: Female
  Weight: 120.64 kg

DRUGS (7)
  1. TYVASO [Concomitant]
     Active Substance: TREPROSTINIL
  2. ADCIRCA [Concomitant]
     Active Substance: TADALAFIL
  3. METOLAZONE. [Concomitant]
     Active Substance: METOLAZONE
  4. OPSUMIT [Suspect]
     Active Substance: MACITENTAN
     Dosage: 10 MG, QD
     Route: 048
     Dates: start: 20161014, end: 201701
  5. UPTRAVI [Concomitant]
     Active Substance: SELEXIPAG
  6. OPSUMIT [Suspect]
     Active Substance: MACITENTAN
     Indication: PULMONARY ARTERIAL HYPERTENSION
     Dosage: 10 MG, QD
     Route: 048
  7. DILTIAZEM. [Concomitant]
     Active Substance: DILTIAZEM

REACTIONS (15)
  - Headache [Unknown]
  - Bone pain [Unknown]
  - Nasal dryness [Unknown]
  - Nausea [Recovered/Resolved]
  - Diarrhoea [Unknown]
  - Pain in jaw [Unknown]
  - Pyrexia [Unknown]
  - Fall [Unknown]
  - Secretion discharge [Unknown]
  - Bacterial infection [Unknown]
  - Fatigue [Unknown]
  - Cardiac arrest [Unknown]
  - Vomiting [Unknown]
  - Back pain [Unknown]
  - Joint stiffness [Unknown]

NARRATIVE: CASE EVENT DATE: 20161122
